FAERS Safety Report 4939495-3 (Version None)
Quarter: 2006Q1

REPORT INFORMATION
  Report Type: 
  Country: None (occurrence: None)
  Receive Date: 20060306
  Receipt Date: 20060223
  Transmission Date: 20060701
  Serious: Yes (Hospitalization)
  Sender: FDA-Public Use
  Company Number: 2005-136154-NL

PATIENT
  Age: 38 Year
  Sex: Female

DRUGS (5)
  1. NUVARING [Suspect]
     Indication: CONTRACEPTION
     Dosage: DF
     Dates: start: 20051101, end: 20051201
  2. LISINOPRIL W/HYDROCHLOROTHIAZIDE [Concomitant]
  3. BUDESONIDE [Concomitant]
  4. LEVOCETIRIZINE [Concomitant]
  5. EBASTINE [Concomitant]

REACTIONS (4)
  - ABDOMINAL PAIN [None]
  - ENDOMETRIOSIS [None]
  - PERITONEAL CYST [None]
  - PERITONEAL EFFUSION [None]
